FAERS Safety Report 8193105-3 (Version None)
Quarter: 2012Q1

REPORT INFORMATION
  Report Type: 
  Country: None (occurrence: None)
  Receive Date: 20120308
  Receipt Date: 20120308
  Transmission Date: 20120608
  Serious: Yes (Other)
  Sender: FDA-Public Use
  Company Number: None

PATIENT
  Age: 42 Year
  Sex: Female
  Weight: 58.059 kg

DRUGS (2)
  1. SYNTHROID [Suspect]
     Indication: HYPOTHYROIDISM
     Dosage: 125 MCG
     Route: 048
     Dates: start: 20120105, end: 20120305
  2. SYNTHROID [Concomitant]

REACTIONS (7)
  - SUPERFICIAL VEIN PROMINENCE [None]
  - MUSCLE TWITCHING [None]
  - PRODUCT FORMULATION ISSUE [None]
  - TOXICITY TO VARIOUS AGENTS [None]
  - HYPOTHYROIDISM [None]
  - PARAESTHESIA [None]
  - PALPITATIONS [None]
